FAERS Safety Report 7110504-9 (Version None)
Quarter: 2010Q4

REPORT INFORMATION
  Report Type: 
  Country: None (occurrence: None)
  Receive Date: 20101118
  Receipt Date: 20101111
  Transmission Date: 20110411
  Serious: Yes (Other)
  Sender: FDA-Public Use
  Company Number: US-B.I. PHARMACEUTICALS,INC./RIDGEFIELD-2010-BP-12152PF

PATIENT
  Sex: Female
  Weight: 73.03 kg

DRUGS (5)
  1. SPIRIVA [Suspect]
     Indication: CHRONIC OBSTRUCTIVE PULMONARY DISEASE
     Dosage: 18 MCG
     Route: 055
     Dates: start: 20100920, end: 20101027
  2. CHANTIX [Suspect]
     Indication: EX-TOBACCO USER
     Dosage: 0.5 MG
     Route: 048
     Dates: start: 20101018
  3. PREVACID [Concomitant]
  4. FENOFIBRATE [Concomitant]
  5. SIMVASTATIN [Concomitant]

REACTIONS (7)
  - DYSGEUSIA [None]
  - HYPOAESTHESIA ORAL [None]
  - HYPOGEUSIA [None]
  - LIP SWELLING [None]
  - ORAL DISCOMFORT [None]
  - SWOLLEN TONGUE [None]
  - TONGUE DISORDER [None]
